FAERS Safety Report 12069247 (Version 1)
Quarter: 2016Q1

REPORT INFORMATION
  Report Type: Spontaneous
  Country: US (occurrence: None)
  Receive Date: 20160211
  Receipt Date: 20160211
  Transmission Date: 20160526
  Serious: Yes (Disabling)
  Sender: FDA-Public Use
  Company Number: None

PATIENT
  Age: 84 Year
  Sex: Male
  Weight: 97.52 kg

DRUGS (10)
  1. LOSARTAN. [Concomitant]
     Active Substance: LOSARTAN
  2. AMLODIPINE [Concomitant]
     Active Substance: AMLODIPINE BESYLATE
  3. KLOR-CON [Concomitant]
     Active Substance: POTASSIUM CHLORIDE
  4. BIOTIN [Concomitant]
     Active Substance: BIOTIN
  5. ELIQUIS [Suspect]
     Active Substance: APIXABAN
     Indication: ANTICOAGULANT THERAPY
     Dosage: 14/90
     Route: 048
     Dates: start: 20150707
  6. ASPIRIN. [Concomitant]
     Active Substance: ASPIRIN
  7. FUROSEMIDE. [Concomitant]
     Active Substance: FUROSEMIDE
  8. AMLODIPINE BESYLATE. [Concomitant]
     Active Substance: AMLODIPINE BESYLATE
  9. ZINC [Concomitant]
     Active Substance: ZINC\ZINC CHLORIDE
  10. PREVAGEN [Concomitant]
     Active Substance: DIETARY SUPPLEMENT

REACTIONS (4)
  - Arthralgia [None]
  - Hypoaesthesia [None]
  - Asthenia [None]
  - Pain in extremity [None]

NARRATIVE: CASE EVENT DATE: 20150801
